FAERS Safety Report 25853591 (Version 1)
Quarter: 2025Q3

REPORT INFORMATION
  Report Type: Spontaneous
  Country: US (occurrence: None)
  Receive Date: 20250926
  Receipt Date: 20250926
  Transmission Date: 20251021
  Serious: Yes (Disabling, Other)
  Sender: FDA-CTU
  Company Number: None

PATIENT
  Age: 4 Year
  Sex: Female
  Weight: 18.45 kg

DRUGS (2)
  1. FLUTICASONE PROPIONATE [Suspect]
     Active Substance: FLUTICASONE PROPIONATE
     Indication: Asthma
     Dosage: 2 PUFF(S) TWICE A DAY ORAL
     Route: 048
     Dates: start: 20231201, end: 20250317
  2. Flintstone Vitamin [Concomitant]

REACTIONS (9)
  - Psychomotor hyperactivity [None]
  - Eating disorder [None]
  - Disturbance in attention [None]
  - Abnormal behaviour [None]
  - Poor quality sleep [None]
  - Gaze palsy [None]
  - Tooth loss [None]
  - Injury [None]
  - Therapy cessation [None]

NARRATIVE: CASE EVENT DATE: 20240601
